FAERS Safety Report 7280614-4 (Version None)
Quarter: 2011Q1

REPORT INFORMATION
  Report Type: 
  Country: None (occurrence: None)
  Receive Date: 20110203
  Receipt Date: 20110203
  Transmission Date: 20110831
  Serious: Yes (Other)
  Sender: FDA-Public Use
  Company Number: None

PATIENT
  Sex: Male
  Weight: 86.1834 kg

DRUGS (2)
  1. LEVAQUIN [Suspect]
     Indication: HYPOAESTHESIA ORAL
     Dosage: 1 DAILY PO
     Route: 048
     Dates: start: 20110125, end: 20110130
  2. LEVAQUIN [Suspect]
     Indication: PARAESTHESIA ORAL
     Dosage: 1 DAILY PO
     Route: 048
     Dates: start: 20110125, end: 20110130

REACTIONS (2)
  - HYPOAESTHESIA ORAL [None]
  - PARAESTHESIA ORAL [None]
